FAERS Safety Report 17441134 (Version 3)
Quarter: 2020Q3

REPORT INFORMATION
  Report Type: Spontaneous
  Country: US (occurrence: US)
  Receive Date: 20200220
  Receipt Date: 20200904
  Transmission Date: 20201102
  Serious: No
  Sender: FDA-Public Use
  Company Number: US-SA-2020SA042914

PATIENT

DRUGS (7)
  1. LATANOPROST. [Concomitant]
     Active Substance: LATANOPROST
  2. LOSARTAN. [Concomitant]
     Active Substance: LOSARTAN
  3. IBUPROFEN. [Concomitant]
     Active Substance: IBUPROFEN
  4. DUPIXENT [Suspect]
     Active Substance: DUPILUMAB
     Indication: PSORIASIS
     Dosage: 300 MG, QOW
     Route: 058
     Dates: start: 201912
  5. OXAZEPAM. [Concomitant]
     Active Substance: OXAZEPAM
  6. OMEPRAZOLE. [Concomitant]
     Active Substance: OMEPRAZOLE
  7. DUPIXENT [Suspect]
     Active Substance: DUPILUMAB
     Indication: DERMATITIS ATOPIC
     Dosage: 300 MG,QOW
     Route: 058
     Dates: start: 20200120

REACTIONS (3)
  - Product use in unapproved indication [Unknown]
  - Blepharitis [Recovered/Resolved]
  - Conjunctivitis [Recovered/Resolved]

NARRATIVE: CASE EVENT DATE: 201912
